FAERS Safety Report 6815577-6 (Version None)
Quarter: 2010Q3

REPORT INFORMATION
  Report Type: 
  Country: None (occurrence: None)
  Receive Date: 20100702
  Receipt Date: 20100628
  Transmission Date: 20110219
  Serious: Yes (Other)
  Sender: FDA-Public Use
  Company Number: DE-BAYER-201027640GPV

PATIENT
  Age: 40 Year
  Sex: Female
  Weight: 64 kg

DRUGS (1)
  1. QLAIRA [Suspect]
     Indication: PRODUCT USED FOR UNKNOWN INDICATION

REACTIONS (2)
  - LYMPHADENOPATHY [None]
  - OEDEMA PERIPHERAL [None]
